FAERS Safety Report 25903567 (Version 1)
Quarter: 2025Q4

REPORT INFORMATION
  Report Type: Spontaneous
  Country: CN (occurrence: CN)
  Receive Date: 20251010
  Receipt Date: 20251010
  Transmission Date: 20260117
  Serious: Yes (Hospitalization)
  Sender: BAXTER
  Company Number: None

PATIENT
  Age: 61 Year
  Sex: Female
  Weight: 60 kg

DRUGS (4)
  1. CYCLOPHOSPHAMIDE [Suspect]
     Active Substance: CYCLOPHOSPHAMIDE
     Indication: Breast cancer female
     Dosage: 0.9 G, QD (Q3W)
     Route: 042
     Dates: start: 20250916, end: 20250916
  2. PACLITAXEL [Suspect]
     Active Substance: PACLITAXEL
     Indication: Breast cancer female
     Dosage: 400 MG, QD (Q3W)
     Route: 041
     Dates: start: 20250916, end: 20250916
  3. SODIUM CHLORIDE [Suspect]
     Active Substance: SODIUM CHLORIDE
     Indication: Medication dilution
     Dosage: 80 ML, QD (PACLITAXEL FOR INJECTION (ALBUMIN BOUND) + SODIUM CHLORIDE)
     Route: 041
     Dates: start: 20250916, end: 20250916
  4. SODIUM CHLORIDE [Suspect]
     Active Substance: SODIUM CHLORIDE
     Indication: Medication dilution
     Dosage: 30 ML, QD (CYCLOPHOSPHAMIDE + SODIUM CHLORIDE)
     Route: 042
     Dates: start: 20250916, end: 20250916

REACTIONS (3)
  - Muscular weakness [Unknown]
  - Rash [Recovering/Resolving]
  - Pruritus [Recovering/Resolving]

NARRATIVE: CASE EVENT DATE: 20250919
